FAERS Safety Report 8471421-5 (Version None)
Quarter: 2012Q2

REPORT INFORMATION
  Report Type: 
  Country: None (occurrence: None)
  Receive Date: 20120627
  Receipt Date: 20120625
  Transmission Date: 20120825
  Serious: Yes (Other)
  Sender: FDA-Public Use
  Company Number: US-ROCHE-1047421

PATIENT
  Sex: Female
  Weight: 53.572 kg

DRUGS (2)
  1. NORGESTIMATE AND ETHINYL ESTRADIOL [Concomitant]
  2. ACCUTANE [Suspect]
     Indication: ACNE
     Route: 065
     Dates: start: 20040629, end: 20050201

REACTIONS (4)
  - DEPRESSION [None]
  - INFLAMMATORY BOWEL DISEASE [None]
  - COLITIS MICROSCOPIC [None]
  - IRRITABLE BOWEL SYNDROME [None]
